FAERS Safety Report 14990328 (Version 2)
Quarter: 2020Q2

REPORT INFORMATION
  Report Type: Spontaneous
  Country: US (occurrence: US)
  Receive Date: 20180608
  Receipt Date: 20200616
  Transmission Date: 20200713
  Serious: No
  Sender: FDA-Public Use
  Company Number: US-ROCHE-2106445

PATIENT
  Sex: Female
  Weight: 57.66 kg

DRUGS (5)
  1. ESTRADIOL. [Concomitant]
     Active Substance: ESTRADIOL
     Route: 062
     Dates: start: 20181113
  2. FLUZONE [INFLUENZA VACCINE] [Concomitant]
     Route: 023
     Dates: start: 20170523
  3. TRINTELLIX [Concomitant]
     Active Substance: VORTIOXETINE HYDROBROMIDE
     Route: 048
     Dates: start: 20190116
  4. ACTEMRA [Suspect]
     Active Substance: TOCILIZUMAB
     Indication: PRODUCT USED FOR UNKNOWN INDICATION
     Dosage: 162 MG/0.9 ML
     Route: 058
     Dates: start: 20170503
  5. ZYPREXA [Concomitant]
     Active Substance: OLANZAPINE
     Route: 048
     Dates: start: 20190116

REACTIONS (1)
  - Depression [Unknown]
